FAERS Safety Report 4698114-4 (Version None)
Quarter: 2005Q2

REPORT INFORMATION
  Report Type: 
  Country: None (occurrence: None)
  Receive Date: 20050126
  Receipt Date: 20050126
  Transmission Date: 20051028
  Serious: Yes (Disabling)
  Sender: FDA-Public Use
  Company Number: None

PATIENT
  Sex: Female

DRUGS (3)
  1. CLONAZEPAM [Suspect]
     Indication: SCHIZOPHRENIA, UNDIFFERENTIATED TYPE
  2. ZYPREXA [Concomitant]
  3. ZOLOFT [Concomitant]

REACTIONS (2)
  - ANXIETY [None]
  - PHARMACEUTICAL PRODUCT COMPLAINT [None]
